FAERS Safety Report 4899416-9 (Version None)
Quarter: 2006Q1

REPORT INFORMATION
  Report Type: 
  Country: None (occurrence: None)
  Receive Date: 20060202
  Receipt Date: 20060126
  Transmission Date: 20060701
  Serious: Yes (Hospitalization)
  Sender: FDA-Public Use
  Company Number: US-ABBOTT-06P-163-0323467-00

PATIENT
  Age: 15 Year
  Sex: Male

DRUGS (1)
  1. DIVALPROEX SODIUM [Suspect]
     Indication: OVERDOSE
     Route: 048

REACTIONS (7)
  - DELIRIUM [None]
  - DIZZINESS [None]
  - DRUG LEVEL INCREASED [None]
  - INTENTIONAL DRUG MISUSE [None]
  - INTENTIONAL OVERDOSE [None]
  - NEPHROPATHY [None]
  - VOMITING [None]
